FAERS Safety Report 15450418 (Version 2)
Quarter: 2022Q1

REPORT INFORMATION
  Report Type: Spontaneous
  Country: US (occurrence: US)
  Receive Date: 20181001
  Receipt Date: 20220228
  Transmission Date: 20220424
  Serious: Yes (Life-Threatening, Hospitalization)
  Sender: FDA-Public Use
  Company Number: US-HORIZON-KRY-0309-2018

PATIENT

DRUGS (8)
  1. KRYSTEXXA [Suspect]
     Active Substance: PEGLOTICASE
     Indication: Gout
     Dosage: 8 MG
     Route: 042
  2. LISINOPRIL [Concomitant]
     Active Substance: LISINOPRIL
  3. ALLOPURINOL [Concomitant]
     Active Substance: ALLOPURINOL
     Dosage: 100 MG, QD
  4. COLCHICINE [Concomitant]
     Active Substance: COLCHICINE
     Dosage: 0.6 MG
  5. CELECOXIB [Concomitant]
     Active Substance: CELECOXIB
  6. VITAMINS NOS [Concomitant]
     Active Substance: VITAMINS
  7. FUROSEMIDE [Concomitant]
     Active Substance: FUROSEMIDE
  8. KAYEXALATE [Concomitant]
     Active Substance: SODIUM POLYSTYRENE SULFONATE

REACTIONS (5)
  - Hyperkalaemia [Not Recovered/Not Resolved]
  - Haemodialysis [Unknown]
  - Methaemoglobinaemia [Unknown]
  - Haemolysis [Not Recovered/Not Resolved]
  - Contraindicated product administered [Unknown]
